FAERS Safety Report 14030784 (Version 2)
Quarter: 2018Q1

REPORT INFORMATION
  Report Type: Spontaneous
  Country: GB (occurrence: GB)
  Receive Date: 20171002
  Receipt Date: 20180117
  Transmission Date: 20180508
  Serious: Yes (Death, Hospitalization)
  Sender: FDA-Public Use
  Company Number: GB-ROCHE-2000246

PATIENT
  Age: 42 Year
  Sex: Male

DRUGS (1)
  1. CAPECITABINE. [Suspect]
     Active Substance: CAPECITABINE
     Indication: INTESTINAL ADENOCARCINOMA
     Route: 065

REACTIONS (12)
  - Cardiac arrest [Fatal]
  - Toxicity to various agents [Not Recovered/Not Resolved]
  - Diarrhoea [Unknown]
  - Rash macular [Unknown]
  - Vomiting [Unknown]
  - Nausea [Unknown]
  - Lip dry [Unknown]
  - Mucosal inflammation [Unknown]
  - Skin disorder [Unknown]
  - Neutropenia [Unknown]
  - Chapped lips [Unknown]
  - Gastrointestinal haemorrhage [Fatal]

NARRATIVE: CASE EVENT DATE: 20170428
